FAERS Safety Report 22350821 (Version 1)
Quarter: 2023Q2

REPORT INFORMATION
  Report Type: Spontaneous
  Country: US (occurrence: None)
  Receive Date: 20230521
  Receipt Date: 20230521
  Transmission Date: 20230721
  Serious: No
  Sender: FDA-Public Use
  Company Number: None

PATIENT
  Age: 72 Year
  Sex: Male
  Weight: 81 kg

DRUGS (10)
  1. LORATADINE [Suspect]
     Active Substance: LORATADINE
     Indication: Sinus congestion
     Dosage: 1 TABLET AT BEDTIME ORAL
     Route: 048
  2. CHOLESTYRAMINE [Concomitant]
     Active Substance: CHOLESTYRAMINE
  3. ATORVASTATIN [Concomitant]
     Active Substance: ATORVASTATIN
  4. AMLODIPINE [Concomitant]
     Active Substance: AMLODIPINE BESYLATE
  5. TOLTERODINE [Concomitant]
  6. LATANOPROST [Concomitant]
  7. GLUCOSAMINE/CHONDROITIN [Concomitant]
  8. ACETAMINOPHEN, ARTHRITIS [Concomitant]
  9. CALCIUM CITRATE [Concomitant]
     Active Substance: CALCIUM CITRATE
  10. ASPIRIN [Concomitant]
     Active Substance: ASPIRIN

REACTIONS (2)
  - Rectal discharge [None]
  - Therapy cessation [None]

NARRATIVE: CASE EVENT DATE: 20230501
